FAERS Safety Report 6812331-6 (Version None)
Quarter: 2010Q3

REPORT INFORMATION
  Report Type: 
  Country: None (occurrence: None)
  Receive Date: 20100701
  Receipt Date: 20100617
  Transmission Date: 20110219
  Serious: Yes (Other)
  Sender: FDA-Public Use
  Company Number: PHHY2010US40284

PATIENT
  Age: 31 Year
  Sex: Male

DRUGS (3)
  1. MYCOPHENOLATE MOFETIL [Suspect]
     Indication: HEART TRANSPLANT
  2. TACROLIMUS [Suspect]
     Indication: HEART TRANSPLANT
  3. PREDNISOLONE [Suspect]
     Indication: HEART TRANSPLANT

REACTIONS (7)
  - ASTHENIA [None]
  - CYTOMEGALOVIRUS INFECTION [None]
  - DIARRHOEA [None]
  - MONOCYTOSIS [None]
  - NEUTROPHIL MORPHOLOGY ABNORMAL [None]
  - PYREXIA [None]
  - THROMBOCYTOPENIA [None]
